FAERS Safety Report 19911821 (Version 1)
Quarter: 2021Q4

REPORT INFORMATION
  Report Type: Spontaneous
  Country: US (occurrence: US)
  Receive Date: 20211002
  Receipt Date: 20211002
  Transmission Date: 20220303
  Serious: Yes (unspecified)
  Sender: FDA-Public Use
  Company Number: None

PATIENT
  Age: 56 Year
  Sex: Male
  Weight: 83.25 kg

DRUGS (3)
  1. LOTRIMIN DAILY PREVENTION DEO [Suspect]
     Active Substance: TOLNAFTATE
     Indication: Fungal infection
     Route: 061
     Dates: start: 20180510, end: 20210801
  2. LOTRIMIN DAILY PREVENTION DEO [Suspect]
     Active Substance: TOLNAFTATE
     Indication: Tinea pedis
  3. KLONOPIN [Concomitant]
     Active Substance: CLONAZEPAM

REACTIONS (5)
  - Application site pain [None]
  - Hypersensitivity [None]
  - Chemical burn [None]
  - Scar [None]
  - Pruritus [None]

NARRATIVE: CASE EVENT DATE: 20200520
